FAERS Safety Report 17316924 (Version 1)
Quarter: 2020Q1

REPORT INFORMATION
  Report Type: Report from Study
  Country: None (occurrence: FR)
  Receive Date: 20200124
  Receipt Date: 20200124
  Transmission Date: 20200409
  Serious: Yes (Hospitalization, Other)
  Sender: FDA-Public Use
  Company Number: FR-ABBVIE-19K-056-3149210-00

PATIENT
  Age: 69 Year
  Sex: Male

DRUGS (2)
  1. IMBRUVICA [Suspect]
     Active Substance: IBRUTINIB
     Indication: MANTLE CELL LYMPHOMA
  2. IMBRUVICA [Suspect]
     Active Substance: IBRUTINIB
     Indication: CHRONIC LYMPHOCYTIC LEUKAEMIA
     Route: 048

REACTIONS (6)
  - Acute kidney injury [Unknown]
  - Escherichia infection [Unknown]
  - Myocardial ischaemia [Recovered/Resolved with Sequelae]
  - Adjustment disorder with depressed mood [Unknown]
  - Urinary tract infection [Unknown]
  - Coronary artery insufficiency [Unknown]

NARRATIVE: CASE EVENT DATE: 20190220
